FAERS Safety Report 7974404-4 (Version None)
Quarter: 2011Q4

REPORT INFORMATION
  Report Type: 
  Country: None (occurrence: None)
  Receive Date: 20111213
  Receipt Date: 20111202
  Transmission Date: 20120403
  Serious: No
  Sender: FDA-Public Use
  Company Number: BR-NOVOPROD-336741

PATIENT

DRUGS (2)
  1. LIRAGLUTIDE FLEXPEN [Suspect]
     Dosage: 1.2 MG, QD
     Route: 058
     Dates: start: 20111004
  2. LIRAGLUTIDE FLEXPEN [Suspect]
     Indication: TYPE 2 DIABETES MELLITUS
     Dosage: 1.8 MG, QD
     Route: 058
     Dates: start: 20110908, end: 20111003

REACTIONS (1)
  - HEPATIC STEATOSIS [None]
